FAERS Safety Report 8563873 (Version 2)
Quarter: 2013Q3

REPORT INFORMATION
  Report Type: Report from Study
  Country: US (occurrence: US)
  Receive Date: 20120515
  Receipt Date: 20130715
  Transmission Date: 20140515
  Serious: Yes (Hospitalization, Other)
  Sender: FDA-Public Use
  Company Number: US-ELI_LILLY_AND_COMPANY-US201205002290

PATIENT
  Age: 72 Year
  Sex: Female

DRUGS (2)
  1. TERIPARATIDE [Suspect]
     Indication: OSTEOPOROSIS
     Dosage: 20 UG, QD
     Route: 065
     Dates: start: 20120201, end: 20120312
  2. TERIPARATIDE [Suspect]
     Dosage: 20 UG, QD
     Dates: start: 20121013

REACTIONS (4)
  - Cerebrovascular accident [Unknown]
  - Haemorrhage intracranial [Unknown]
  - Hemiparesis [Recovering/Resolving]
  - Speech disorder [Unknown]
